APPROVED DRUG PRODUCT: METHYLERGONOVINE MALEATE
Active Ingredient: METHYLERGONOVINE MALEATE
Strength: 0.2MG/ML
Dosage Form/Route: INJECTABLE;INJECTION
Application: A090193 | Product #001 | TE Code: AP
Applicant: AMERICAN REGENT INC
Approved: Nov 24, 2008 | RLD: No | RS: Yes | Type: RX